FAERS Safety Report 13718142 (Version 1)
Quarter: 2017Q3

REPORT INFORMATION
  Report Type: Spontaneous
  Country: US (occurrence: US)
  Receive Date: 20170705
  Receipt Date: 20170705
  Transmission Date: 20171127
  Serious: Yes (Hospitalization)
  Sender: FDA-Public Use
  Company Number: US-BAYER-2017-123413

PATIENT
  Sex: Female

DRUGS (3)
  1. BAYER ASPIRIN [Suspect]
     Active Substance: ASPIRIN
     Indication: THROMBOSIS
     Dosage: UNK
  2. XARELTO [Suspect]
     Active Substance: RIVAROXABAN
  3. APIXABAN [Suspect]
     Active Substance: APIXABAN
     Indication: THROMBOSIS

REACTIONS (2)
  - Nausea [Not Recovered/Not Resolved]
  - Chest pain [None]
